FAERS Safety Report 6134204-7 (Version None)
Quarter: 2009Q1

REPORT INFORMATION
  Report Type: 
  Country: None (occurrence: None)
  Receive Date: 20090326
  Receipt Date: 20090317
  Transmission Date: 20090719
  Serious: Yes (Hospitalization, Disabling, Other)
  Sender: FDA-Public Use
  Company Number: US-MERCK-0805USA00457

PATIENT
  Age: 75 Year
  Sex: Female
  Weight: 58 kg

DRUGS (6)
  1. FOSAMAX [Suspect]
     Indication: OSTEOPOROSIS
     Route: 048
     Dates: start: 20000601
  2. FOSAMAX [Suspect]
     Route: 048
     Dates: start: 20001201, end: 20010101
  3. FOSAMAX [Suspect]
     Route: 048
     Dates: start: 20030101, end: 20041201
  4. FOSAMAX [Suspect]
     Route: 048
     Dates: end: 20060801
  5. FOSAMAX [Suspect]
     Route: 048
     Dates: start: 20020101, end: 20030101
  6. FOSAMAX PLUS D [Suspect]
     Indication: OSTEOPOROSIS
     Route: 048

REACTIONS (38)
  - ABDOMINAL DISCOMFORT [None]
  - ADVERSE DRUG REACTION [None]
  - ALOPECIA [None]
  - ANIMAL BITE [None]
  - ARTHROPATHY [None]
  - BREAST MASS [None]
  - CATARACT [None]
  - CHEST PAIN [None]
  - CORONARY ARTERY DISEASE [None]
  - DEAFNESS [None]
  - DEPRESSION [None]
  - DRUG HYPERSENSITIVITY [None]
  - DRUG INEFFECTIVE [None]
  - DRUG INTOLERANCE [None]
  - DYSPEPSIA [None]
  - GASTROOESOPHAGEAL REFLUX DISEASE [None]
  - GINGIVITIS [None]
  - HAEMATURIA [None]
  - HYPERCHOLESTEROLAEMIA [None]
  - JAW DISORDER [None]
  - JOINT DISLOCATION [None]
  - JOINT INJURY [None]
  - JOINT RANGE OF MOTION DECREASED [None]
  - MASTICATION DISORDER [None]
  - MENTAL DISORDER [None]
  - MIGRAINE [None]
  - MUSCULOSKELETAL DISCOMFORT [None]
  - OSTEOARTHRITIS [None]
  - OSTEONECROSIS [None]
  - PERSONALITY DISORDER [None]
  - PRURITUS [None]
  - RESORPTION BONE INCREASED [None]
  - SKIN CANCER [None]
  - STRESS URINARY INCONTINENCE [None]
  - SUICIDAL IDEATION [None]
  - URTICARIA [None]
  - VISUAL ACUITY REDUCED [None]
  - VULVOVAGINAL MYCOTIC INFECTION [None]
